FAERS Safety Report 11946134 (Version 2)
Quarter: 2016Q1

REPORT INFORMATION
  Report Type: Report from Study
  Country: US (occurrence: US)
  Receive Date: 20160125
  Receipt Date: 20160129
  Transmission Date: 20160526
  Serious: No
  Sender: FDA-Public Use
  Company Number: US-AMGEN-USASP2015136818

PATIENT
  Age: 81 Year
  Sex: Female

DRUGS (3)
  1. ONGLYZA [Concomitant]
     Active Substance: SAXAGLIPTIN HYDROCHLORIDE
     Indication: DIABETES MELLITUS
     Dosage: UNK
  2. REPATHA [Suspect]
     Active Substance: EVOLOCUMAB
     Indication: PRODUCT USED FOR UNKNOWN INDICATION
     Dosage: UNK
     Route: 065
     Dates: start: 20151030
  3. TOUJEO [Concomitant]
     Active Substance: INSULIN GLARGINE
     Indication: DIABETES MELLITUS
     Dosage: UNK

REACTIONS (9)
  - Back pain [Recovering/Resolving]
  - Oral disorder [Recovering/Resolving]
  - Tongue disorder [Recovering/Resolving]
  - Nasal polyps [Recovering/Resolving]
  - Paraesthesia oral [Recovering/Resolving]
  - Tongue discolouration [Recovering/Resolving]
  - Oral pain [Recovering/Resolving]
  - Swollen tongue [Recovering/Resolving]
  - Palatal disorder [Recovering/Resolving]

NARRATIVE: CASE EVENT DATE: 201512
